FAERS Safety Report 4499184-9 (Version None)
Quarter: 2004Q4

REPORT INFORMATION
  Report Type: 
  Country: None (occurrence: None)
  Receive Date: 20041111
  Receipt Date: 20041105
  Transmission Date: 20050328
  Serious: Yes (Other)
  Sender: FDA-Public Use
  Company Number: PHEH2004US11950

PATIENT
  Age: 24 Year
  Sex: Male

DRUGS (1)
  1. LAMISIL [Suspect]
     Indication: NAIL TINEA
     Dosage: 250 MG, QD
     Route: 048
     Dates: start: 20040901, end: 20041001

REACTIONS (3)
  - DECREASED APPETITE [None]
  - ELEVATED MOOD [None]
  - HALLUCINATION, VISUAL [None]
